FAERS Safety Report 13085935 (Version 3)
Quarter: 2017Q2

REPORT INFORMATION
  Report Type: Spontaneous
  Country: US (occurrence: US)
  Receive Date: 20170104
  Receipt Date: 20170413
  Transmission Date: 20170830
  Serious: No
  Sender: FDA-Public Use
  Company Number: US-SHIRE-US201619999

PATIENT
  Age: 89 Year
  Sex: Female
  Weight: 66.67 kg

DRUGS (10)
  1. TIMOLOL                            /00371202/ [Concomitant]
     Indication: GLAUCOMA
     Dosage: 1 GTT (5 MG), 1X/DAY:QD
     Route: 047
  2. MYRBETRIQ [Concomitant]
     Active Substance: MIRABEGRON
     Indication: FLUID RETENTION
     Dosage: 50 MG, 1X/DAY:QD
     Route: 048
     Dates: start: 201607
  3. JANUVIA [Concomitant]
     Active Substance: SITAGLIPTIN PHOSPHATE
     Indication: DIABETES MELLITUS
     Dosage: 100 MG, 1X/DAY:QD
     Route: 048
  4. SIMVASTATIN. [Concomitant]
     Active Substance: SIMVASTATIN
     Indication: HYPERLIPIDAEMIA
     Dosage: 20 MG, 1X/DAY:QD
     Route: 048
  5. ASA [Concomitant]
     Active Substance: ASPIRIN
     Indication: PRODUCT USED FOR UNKNOWN INDICATION
     Dosage: 81 MG, 1X/DAY:QD
     Route: 048
  6. CEPHALEXIN                         /00145501/ [Concomitant]
     Active Substance: CEPHALEXIN
     Indication: TOOTH DISORDER
     Dosage: 500 MG, 1X/DAY:QD
     Route: 048
  7. ERYTHROMYCIN. [Concomitant]
     Active Substance: ERYTHROMYCIN
     Indication: EYELID IRRITATION
     Dosage: UNK UNK (0.5%), 2X/DAY:BID
     Route: 061
     Dates: start: 2016
  8. XIIDRA [Suspect]
     Active Substance: LIFITEGRAST
     Indication: DRY EYE
     Dosage: 1 GTT (BOTH EYES), 2X/DAY:BID
     Route: 047
     Dates: start: 20161215
  9. HCTZ [Concomitant]
     Active Substance: HYDROCHLOROTHIAZIDE
     Indication: FLUID RETENTION
     Dosage: 25 MG, 1X/DAY:QD
     Route: 048
     Dates: start: 201607
  10. AVENOVA [Concomitant]
     Indication: EYELID IRRITATION
     Dosage: UNK, 2X/DAY:BID
     Route: 061
     Dates: start: 2016

REACTIONS (2)
  - Instillation site pain [Unknown]
  - Instillation site irritation [Unknown]

NARRATIVE: CASE EVENT DATE: 20161216
